FAERS Safety Report 6720718-5 (Version None)
Quarter: 2010Q2

REPORT INFORMATION
  Report Type: 
  Country: None (occurrence: None)
  Receive Date: 20100512
  Receipt Date: 20100503
  Transmission Date: 20101027
  Serious: Yes (Hospitalization)
  Sender: FDA-Public Use
  Company Number: US-BIOGENIDEC-2010BI006611

PATIENT
  Age: 60 Year
  Sex: Female
  Weight: 33 kg

DRUGS (10)
  1. TYSABRI [Suspect]
     Indication: MULTIPLE SCLEROSIS
     Route: 042
     Dates: start: 20091221
  2. LORAZEPAM [Concomitant]
  3. LORAZEPAM [Concomitant]
  4. CARBAMEZAPIME [Concomitant]
  5. CYMBALTA [Concomitant]
  6. METOCLOPRAMIDE HYDROCHLORIDE [Concomitant]
  7. ACTONEL [Concomitant]
  8. LISINOPRIL [Concomitant]
  9. CYCLOBENZAPRINE [Concomitant]
  10. ENABLEX [Concomitant]

REACTIONS (4)
  - CEREBROVASCULAR ACCIDENT [None]
  - CONTUSION [None]
  - FALL [None]
  - URINARY TRACT INFECTION [None]
